FAERS Safety Report 24030372 (Version 2)
Quarter: 2024Q3

REPORT INFORMATION
  Report Type: Spontaneous
  Country: US (occurrence: US)
  Receive Date: 20240628
  Receipt Date: 20240703
  Transmission Date: 20241017
  Serious: Yes (Life-Threatening, Hospitalization, Other)
  Sender: GLENMARK
  Company Number: US-GLENMARK PHARMACEUTICALS-2024GMK091820

PATIENT

DRUGS (1)
  1. SULFAMETHOXAZOLE\TRIMETHOPRIM [Suspect]
     Active Substance: SULFAMETHOXAZOLE\TRIMETHOPRIM
     Indication: Impetigo
     Dosage: UNK
     Route: 065

REACTIONS (10)
  - Pulmonary fibrosis [Unknown]
  - Respiratory distress [Unknown]
  - Diffuse alveolar damage [Unknown]
  - Pneumomediastinum [Unknown]
  - Pulmonary interstitial emphysema syndrome [Unknown]
  - Subcutaneous emphysema [Unknown]
  - Pleural thickening [Unknown]
  - Pulmonary toxicity [Unknown]
  - Acute respiratory failure [Unknown]
  - Interstitial lung disease [Unknown]
